FAERS Safety Report 8796896 (Version 1)
Quarter: 2012Q4

REPORT INFORMATION
  Report Type: 
  Country: US (occurrence: US)
  Receive Date: 20120920
  Receipt Date: 20120920
  Transmission Date: 20130627
  Serious: No
  Sender: FDA-Public Use
  Company Number: US-B.I. PHARMACEUTICALS,INC./RIDGEFIELD-2012-BP-22743BP

PATIENT
  Age: 82 Year
  Sex: Male

DRUGS (5)
  1. PRADAXA [Suspect]
     Indication: ATRIAL FIBRILLATION
     Dosage: 300 mg
     Route: 048
     Dates: start: 201012
  2. FLECAINIDE [Concomitant]
     Indication: ARRHYTHMIA
     Dosage: 50 mg
     Route: 048
  3. CRESTOR [Concomitant]
     Indication: BLOOD CHOLESTEROL INCREASED
     Dosage: 10 mg
     Route: 048
  4. ASPIRIN [Concomitant]
     Dosage: 81 mg
     Route: 048
  5. LISINOPRIL [Concomitant]
     Indication: HYPERTENSION
     Dosage: 40 mg
     Route: 048

REACTIONS (4)
  - Dizziness [Not Recovered/Not Resolved]
  - Atrial fibrillation [Recovered/Resolved]
  - Blood sodium decreased [Unknown]
  - Gait disturbance [Not Recovered/Not Resolved]
